FAERS Safety Report 25562622 (Version 3)
Quarter: 2025Q3

REPORT INFORMATION
  Report Type: Spontaneous
  Country: EU (occurrence: EU)
  Receive Date: 20250716
  Receipt Date: 20250804
  Transmission Date: 20251020
  Serious: Yes (Death, Other)
  Sender: SANDOZ
  Company Number: EU-BRISTOL-MYERS SQUIBB COMPANY-2025-094682

PATIENT
  Age: 45 Year
  Sex: Male

DRUGS (22)
  1. BEVACIZUMAB [Suspect]
     Active Substance: BEVACIZUMAB
     Indication: Medulloblastoma recurrent
     Dosage: 10 MILLIGRAM/KILOGRAM, Q2WK
     Route: 042
  2. BEVACIZUMAB [Suspect]
     Active Substance: BEVACIZUMAB
     Indication: Off label use
  3. CELECOXIB [Suspect]
     Active Substance: CELECOXIB
     Indication: Brain neoplasm
     Dosage: 800 MG, BID
     Route: 048
  4. CELECOXIB [Suspect]
     Active Substance: CELECOXIB
     Indication: Medulloblastoma
  5. CELECOXIB [Suspect]
     Active Substance: CELECOXIB
     Indication: Medulloblastoma recurrent
  6. CYCLOPHOSPHAMIDE [Suspect]
     Active Substance: CYCLOPHOSPHAMIDE
     Indication: Brain neoplasm
     Route: 048
  7. CYCLOPHOSPHAMIDE [Suspect]
     Active Substance: CYCLOPHOSPHAMIDE
     Indication: Medulloblastoma
  8. CYCLOPHOSPHAMIDE [Suspect]
     Active Substance: CYCLOPHOSPHAMIDE
     Indication: Medulloblastoma recurrent
  9. CYTARABINE [Suspect]
     Active Substance: CYTARABINE
     Indication: Medulloblastoma
     Route: 065
  10. ETOPOSIDE [Suspect]
     Active Substance: ETOPOSIDE
     Indication: Medulloblastoma recurrent
     Route: 065
  11. ETOPOSIDE [Suspect]
     Active Substance: ETOPOSIDE
     Indication: Brain neoplasm
     Route: 065
  12. FENOFIBRATE [Suspect]
     Active Substance: FENOFIBRATE
     Indication: Brain neoplasm
     Dosage: 90 MG/M2, QD
     Route: 048
  13. FENOFIBRATE [Suspect]
     Active Substance: FENOFIBRATE
     Indication: Medulloblastoma
  14. FENOFIBRATE [Suspect]
     Active Substance: FENOFIBRATE
     Indication: Medulloblastoma recurrent
  15. THALIDOMIDE [Suspect]
     Active Substance: THALIDOMIDE
     Indication: Medulloblastoma recurrent
     Dosage: 3 MILLIGRAM/KILOGRAM, ONCE A DAY
     Route: 048
  16. THALIDOMIDE [Suspect]
     Active Substance: THALIDOMIDE
     Indication: Brain neoplasm
  17. CARBOPLATIN [Concomitant]
     Active Substance: CARBOPLATIN
     Indication: Brain neoplasm
     Route: 065
  18. CARBOPLATIN [Concomitant]
     Active Substance: CARBOPLATIN
     Indication: Medulloblastoma recurrent
  19. METHOTREXATE [Concomitant]
     Active Substance: METHOTREXATE
     Indication: Brain neoplasm
     Route: 065
  20. METHOTREXATE [Concomitant]
     Active Substance: METHOTREXATE
     Indication: Medulloblastoma recurrent
  21. TEMOZOLOMIDE [Concomitant]
     Active Substance: TEMOZOLOMIDE
     Indication: Brain neoplasm
     Route: 065
  22. TEMOZOLOMIDE [Concomitant]
     Active Substance: TEMOZOLOMIDE
     Indication: Medulloblastoma recurrent

REACTIONS (5)
  - Medulloblastoma recurrent [Fatal]
  - Neutropenia [Unknown]
  - Lymphopenia [Unknown]
  - Abdominal pain upper [Unknown]
  - Off label use [Unknown]
